FAERS Safety Report 25354231 (Version 1)
Quarter: 2025Q2

REPORT INFORMATION
  Report Type: Other
  Country: ES (occurrence: ES)
  Receive Date: 20250523
  Receipt Date: 20250523
  Transmission Date: 20250717
  Serious: Yes (Other)
  Sender: APRECIA PHARMACEUTICALS
  Company Number: ES-Aprecia Pharmaceuticals-APRE20250227

PATIENT
  Age: 70 Year
  Sex: Female

DRUGS (1)
  1. LEVETIRACETAM [Suspect]
     Active Substance: LEVETIRACETAM
     Indication: Product used for unknown indication
     Route: 065

REACTIONS (1)
  - Pemphigoid [Recovered/Resolved]
